FAERS Safety Report 25061019 (Version 1)
Quarter: 2025Q1

REPORT INFORMATION
  Report Type: Other
  Country: CN (occurrence: CN)
  Receive Date: 20250310
  Receipt Date: 20250310
  Transmission Date: 20250409
  Serious: Yes (Hospitalization)
  Sender: B BRAUN
  Company Number: CN-B.Braun Medical Inc.-2144526

PATIENT
  Sex: Female

DRUGS (7)
  1. ACETAMINOPHEN [Suspect]
     Active Substance: ACETAMINOPHEN
  2. IBUPROFEN [Suspect]
     Active Substance: IBUPROFEN
  3. PREDNISONE ACETATE [Concomitant]
     Active Substance: PREDNISONE ACETATE
  4. MONTELUKAST [Concomitant]
     Active Substance: MONTELUKAST
  5. BUDESONIDE\FORMOTEROL [Concomitant]
     Active Substance: BUDESONIDE\FORMOTEROL
  6. CETIRIZINE [Concomitant]
     Active Substance: CETIRIZINE HYDROCHLORIDE
  7. BUDESONIDE [Concomitant]
     Active Substance: BUDESONIDE

REACTIONS (1)
  - NSAID exacerbated respiratory disease [Unknown]
